FAERS Safety Report 6736972-X (Version None)
Quarter: 2010Q2

REPORT INFORMATION
  Report Type: 
  Country: None (occurrence: None)
  Receive Date: 20100523
  Receipt Date: 20100401
  Transmission Date: 20101027
  Serious: No
  Sender: FDA-Public Use
  Company Number: US-ALLERGAN-1004379US

PATIENT
  Sex: Female

DRUGS (3)
  1. COMBIGAN [Suspect]
     Indication: GLAUCOMA
     Dosage: UNK
     Route: 047
  2. LUMIGAN [Concomitant]
     Dosage: UNK
  3. REFRESH OPTIVE [Concomitant]

REACTIONS (3)
  - DIPLOPIA [None]
  - EYELIDS PRURITUS [None]
  - VISION BLURRED [None]
